FAERS Safety Report 11740911 (Version 2)
Quarter: 2017Q2

REPORT INFORMATION
  Report Type: Spontaneous
  Country: US (occurrence: US)
  Receive Date: 20151115
  Receipt Date: 20170403
  Transmission Date: 20170829
  Serious: No
  Sender: FDA-Public Use
  Company Number: US-APOTEX-2015AP009625

PATIENT
  Sex: Female

DRUGS (1)
  1. FENTANYL TRANSDERMAL SYSTEM [Suspect]
     Active Substance: FENTANYL
     Indication: ANALGESIC THERAPY
     Dosage: 1 DF, EVERY 3 DAYS
     Route: 062

REACTIONS (5)
  - Device leakage [Unknown]
  - Drug ineffective [Unknown]
  - Product substitution issue [Unknown]
  - Application site warmth [Unknown]
  - Application site dryness [Unknown]
